FAERS Safety Report 12988596 (Version 1)
Quarter: 2016Q4

REPORT INFORMATION
  Report Type: Spontaneous
  Country: US (occurrence: US)
  Receive Date: 20161130
  Receipt Date: 20161130
  Transmission Date: 20170207
  Serious: No
  Sender: FDA-Public Use
  Company Number: US-ALLERGAN-1000084909

PATIENT
  Age: 75 Year
  Sex: Female
  Weight: 63.5 kg

DRUGS (9)
  1. NAMENDA [Suspect]
     Active Substance: MEMANTINE HYDROCHLORIDE
     Indication: DEMENTIA ALZHEIMER^S TYPE
     Dosage: 10 MG, QD
     Route: 048
     Dates: start: 201604
  2. RELACORD [Concomitant]
     Indication: FATIGUE
  3. RELACORD [Concomitant]
     Indication: STRESS
  4. CITALOPRAM HYDROBROMIDE UNK [Concomitant]
     Active Substance: CITALOPRAM HYDROBROMIDE
     Dosage: UNK UNK, QD
  5. LORAZEPAM. [Concomitant]
     Active Substance: LORAZEPAM
     Indication: INSOMNIA
     Dosage: UNK
  6. RELACORD [Concomitant]
     Indication: ANXIETY
     Dosage: UNK
  7. RELACORD [Concomitant]
     Indication: ASTHENIA
  8. RESTIDEND-D [Concomitant]
     Dosage: UNK
  9. RELACORD [Concomitant]
     Indication: DEPRESSED MOOD

REACTIONS (1)
  - Middle insomnia [Not Recovered/Not Resolved]

NARRATIVE: CASE EVENT DATE: 20160430
